FAERS Safety Report 10451545 (Version 1)
Quarter: 2014Q3

REPORT INFORMATION
  Report Type: Spontaneous
  Country: US (occurrence: US)
  Receive Date: 20140913
  Receipt Date: 20140913
  Transmission Date: 20150326
  Serious: No
  Sender: FDA-Public Use
  Company Number: US-009507513-1409USA001818

PATIENT
  Age: 42 Year
  Sex: Female

DRUGS (1)
  1. FOLLISTIM [Suspect]
     Active Substance: FOLLITROPIN
     Indication: ASSISTED FERTILISATION
     Dosage: CART 300 U
     Dates: start: 201408, end: 201408

REACTIONS (3)
  - Chest pain [Recovered/Resolved]
  - Breast pain [Recovered/Resolved]
  - Menstrual disorder [Recovered/Resolved]

NARRATIVE: CASE EVENT DATE: 201408
